FAERS Safety Report 5070692-5 (Version None)
Quarter: 2006Q3

REPORT INFORMATION
  Report Type: 
  Country: None (occurrence: None)
  Receive Date: 20060804
  Receipt Date: 20050926
  Transmission Date: 20061208
  Serious: No
  Sender: FDA-Public Use
  Company Number: US-GLAXOSMITHKLINE-A0576197A

PATIENT
  Sex: Male

DRUGS (1)
  1. NICORETTE [Suspect]
     Indication: DRUG USE FOR UNKNOWN INDICATION
     Dosage: 120MG PER DAY

REACTIONS (1)
  - DRUG ABUSER [None]
